FAERS Safety Report 9954670 (Version 1)
Quarter: 2014Q1

REPORT INFORMATION
  Report Type: Report from Study
  Country: US (occurrence: US)
  Receive Date: 20140304
  Receipt Date: 20140304
  Transmission Date: 20141002
  Serious: No
  Sender: FDA-Public Use
  Company Number: US-ABBVIE-13P-163-1083457-00

PATIENT
  Age: 30 Year
  Sex: Male

DRUGS (4)
  1. HUMIRA [Suspect]
     Indication: COLITIS ULCERATIVE
     Dates: start: 20130405, end: 20130405
  2. HUMIRA [Suspect]
     Dates: start: 20130419
  3. APRISO [Concomitant]
     Indication: COLITIS ULCERATIVE
     Route: 048
  4. UNKNOWN MEDICATION [Concomitant]
     Indication: ABDOMINAL PAIN UPPER
     Dosage: DAILY
     Route: 048

REACTIONS (6)
  - Pain [Recovered/Resolved]
  - Nausea [Recovered/Resolved]
  - Tremor [Recovered/Resolved]
  - Vomiting [Recovered/Resolved]
  - Tremor [Recovered/Resolved]
  - Nausea [Recovered/Resolved]
